FAERS Safety Report 8488556-3 (Version None)
Quarter: 2012Q3

REPORT INFORMATION
  Report Type: 
  Country: None (occurrence: None)
  Receive Date: 20120705
  Receipt Date: 20120625
  Transmission Date: 20120928
  Serious: Yes (Death, Life-Threatening)
  Sender: FDA-Public Use
  Company Number: JP-GENZYME-THYM-1002291

PATIENT

DRUGS (16)
  1. ISOSORBIDE DINITRATE [Concomitant]
     Indication: ANGINA PECTORIS
     Dosage: UNK
     Route: 065
     Dates: start: 20101004, end: 20110111
  2. MOSAPRIDE CITRATE [Concomitant]
     Indication: PROPHYLAXIS AGAINST GASTROINTESTINAL ULCER
     Dosage: UNK
     Dates: start: 20101004, end: 20101201
  3. ACETAMINOPHEN [Concomitant]
     Indication: PREMEDICATION
     Dosage: UNK
     Dates: start: 20101004, end: 20101008
  4. PREDNISOLONE [Concomitant]
     Indication: PREMEDICATION
     Dosage: UNK
     Dates: start: 20101014, end: 20101103
  5. PENTAMIDINE ISETHIONATE [Concomitant]
     Indication: PROPHYLAXIS
     Dosage: UNK
     Dates: start: 20101108, end: 20110209
  6. FLUNITRAZEPAM [Concomitant]
     Indication: INSOMNIA
     Dosage: UNK
     Dates: start: 20101004, end: 20101204
  7. THYMOGLOBULIN [Suspect]
     Indication: APLASTIC ANAEMIA
     Dosage: 150 MG, QD
     Route: 042
     Dates: start: 20101004, end: 20101008
  8. RABEPRAZOLE SODIUM [Concomitant]
     Indication: PROPHYLAXIS AGAINST GASTROINTESTINAL ULCER
     Dosage: UNK
     Dates: start: 20101004, end: 20110125
  9. ITRACONAZOLE [Concomitant]
     Indication: ANTIFUNGAL PROPHYLAXIS
     Dosage: UNK
     Dates: start: 20101004, end: 20101118
  10. LENOGRASTIM [Concomitant]
     Indication: APLASTIC ANAEMIA
     Dosage: UNK
     Dates: start: 20101008, end: 20110209
  11. DEXCHLORPHENIRAMINE MALEATE [Concomitant]
     Indication: PREMEDICATION
     Dosage: UNK
     Dates: start: 20101004, end: 20101008
  12. RED BLOOD CELLS, CONCENTRATED [Concomitant]
     Indication: APLASTIC ANAEMIA
     Dosage: UNK
     Dates: start: 20101021, end: 20110205
  13. CICLOSPORIN [Concomitant]
     Indication: APLASTIC ANAEMIA
     Dosage: 60 MG, QD
     Dates: start: 20101004, end: 20101223
  14. ENTECAVIR [Concomitant]
     Indication: ANTIVIRAL PROPHYLAXIS
     Dosage: UNK
     Dates: start: 20101004, end: 20110129
  15. METHYLPEDNISOLONE SODIUM SUCCINATE [Concomitant]
     Indication: PREMEDICATION
     Dosage: UNK
     Dates: start: 20101004, end: 20101013
  16. PLATELETS [Concomitant]
     Indication: APLASTIC ANAEMIA
     Dosage: UNK
     Dates: start: 20101008, end: 20110207

REACTIONS (14)
  - CYTOMEGALOVIRUS VIRAEMIA [None]
  - LIVER DISORDER [None]
  - PNEUMONIA [None]
  - HYPERCALCAEMIA [None]
  - ANXIETY DISORDER [None]
  - MULTI-ORGAN FAILURE [None]
  - FUNGAEMIA [None]
  - CARDIAC FAILURE [None]
  - HERPES ZOSTER [None]
  - HYPERGLYCAEMIA [None]
  - CELLULITIS [None]
  - HYPOPROTEINAEMIA [None]
  - DEPRESSION [None]
  - DISSEMINATED TUBERCULOSIS [None]
